FAERS Safety Report 9344917 (Version 2)
Quarter: 2013Q3

REPORT INFORMATION
  Report Type: Spontaneous
  Country: FR (occurrence: FR)
  Receive Date: 20130612
  Receipt Date: 20130710
  Transmission Date: 20140515
  Serious: Yes (Hospitalization)
  Sender: FDA-Public Use
  Company Number: FR-TEVA-411554ISR

PATIENT
  Age: 76 Year
  Sex: Female

DRUGS (12)
  1. FUROSEMIDE TEVA 40MG [Suspect]
     Indication: OEDEMA PERIPHERAL
     Dosage: 1 TABLET DAILY; ON MONDAY, WESNEDAY AND FRIDAY
     Route: 048
     Dates: start: 2012
  2. FUROSEMIDE TEVA 40MG [Suspect]
     Indication: ACUTE PULMONARY OEDEMA
     Dosage: .5 TABLET DAILY; ON SUNDAY, TUESDAY, THURSDAY AND SATURDAY
     Route: 048
     Dates: start: 2012
  3. STILNOX [Concomitant]
     Indication: SLEEP DISORDER
  4. KARDEGIC [Concomitant]
  5. ANTIDIURETIC NOS [Concomitant]
  6. BISOPROLOL [Concomitant]
  7. DIFFU K [Concomitant]
  8. ASPEGIC [Concomitant]
  9. PRAVASTATIN [Concomitant]
  10. PARACETAMOL [Concomitant]
  11. IDEOS [Concomitant]
  12. ACTONEL [Concomitant]

REACTIONS (9)
  - Presyncope [Recovered/Resolved]
  - Dizziness [Recovered/Resolved]
  - Micturition urgency [Recovered/Resolved]
  - Local swelling [Recovered/Resolved]
  - Fatigue [Recovered/Resolved]
  - Tachycardia [Recovered/Resolved]
  - Weight decreased [Recovered/Resolved]
  - Hypotension [Recovered/Resolved]
  - Mood altered [Unknown]
